FAERS Safety Report 17222331 (Version 1)
Quarter: 2020Q1

REPORT INFORMATION
  Report Type: Spontaneous
  Country: US (occurrence: US)
  Receive Date: 20191231
  Receipt Date: 20191231
  Transmission Date: 20200409
  Serious: Yes (Disabling)
  Sender: FDA-Public Use
  Company Number: None

PATIENT
  Age: 70 Year
  Sex: Female
  Weight: 65.25 kg

DRUGS (7)
  1. NP THYROID [Concomitant]
     Active Substance: LEVOTHYROXINE\LIOTHYRONINE
  2. RANOLAZINE EXTENDED-RELEASE TABLETS 500 MG [Suspect]
     Active Substance: RANOLAZINE
     Indication: ANGINA PECTORIS
     Dosage: ?          QUANTITY:60 TABLET(S);?
     Route: 048
  3. LIOND MANE [Concomitant]
  4. TUMERIC [Concomitant]
     Active Substance: HERBALS\TURMERIC
  5. CALCIUM [Concomitant]
     Active Substance: CALCIUM
  6. BOSWELLIA [Concomitant]
     Active Substance: DIETARY SUPPLEMENT\HERBALS
  7. VITAMIN D3 [Concomitant]
     Active Substance: CHOLECALCIFEROL

REACTIONS (3)
  - Dyspnoea [None]
  - Chest pain [None]
  - Product substitution issue [None]

NARRATIVE: CASE EVENT DATE: 20191101
